FAERS Safety Report 5694618-6 (Version None)
Quarter: 2008Q2

REPORT INFORMATION
  Report Type: 
  Country: None (occurrence: None)
  Receive Date: 20080404
  Receipt Date: 20080325
  Transmission Date: 20081010
  Serious: Yes (Hospitalization)
  Sender: FDA-Public Use
  Company Number: US-AMGEN-QUU271251

PATIENT
  Sex: Female

DRUGS (1)
  1. ENBREL [Suspect]
     Indication: RHEUMATOID ARTHRITIS
     Route: 058
     Dates: start: 20021202

REACTIONS (13)
  - ARTHRITIS [None]
  - CATARACT [None]
  - COLITIS [None]
  - DRUG ERUPTION [None]
  - HIP ARTHROPLASTY [None]
  - INFLUENZA [None]
  - INJECTION SITE ERYTHEMA [None]
  - INJECTION SITE PAIN [None]
  - INJECTION SITE PRURITUS [None]
  - JOINT ARTHROPLASTY [None]
  - JOINT SWELLING [None]
  - POSTOPERATIVE WOUND INFECTION [None]
  - UPPER RESPIRATORY TRACT INFECTION [None]
